FAERS Safety Report 21512681 (Version 1)
Quarter: 2022Q4

REPORT INFORMATION
  Report Type: Spontaneous
  Country: CA (occurrence: CA)
  Receive Date: 20221027
  Receipt Date: 20221027
  Transmission Date: 20230113
  Serious: Yes (Other)
  Sender: FDA-Public Use
  Company Number: CA-SUN PHARMACEUTICAL INDUSTRIES LTD-2022R1-360484

PATIENT
  Sex: Female

DRUGS (2)
  1. AMIODARONE [Suspect]
     Active Substance: AMIODARONE
     Indication: Arrhythmic storm
     Dosage: UNK
     Route: 065
  2. FLECAINIDE ACETATE [Suspect]
     Active Substance: FLECAINIDE ACETATE
     Indication: Arrhythmic storm
     Dosage: UNK
     Route: 065

REACTIONS (5)
  - Myoclonic epilepsy [Unknown]
  - Gross motor delay [Unknown]
  - Growth retardation [Unknown]
  - Speech disorder developmental [Unknown]
  - Short stature [Unknown]
